FAERS Safety Report 21319150 (Version 2)
Quarter: 2023Q2

REPORT INFORMATION
  Report Type: Spontaneous
  Country: US (occurrence: US)
  Receive Date: 20220911
  Receipt Date: 20230620
  Transmission Date: 20230721
  Serious: No
  Sender: FDA-Public Use
  Company Number: US-SA-SAC20220905000454

PATIENT
  Age: 54 Year
  Sex: Male
  Weight: 92 kg

DRUGS (2)
  1. DUPIXENT [Suspect]
     Active Substance: DUPILUMAB
     Indication: Dermatitis atopic
     Dosage: 300 MG, Q3W
     Route: 058
     Dates: start: 202206
  2. COSENTYX [Concomitant]
     Active Substance: SECUKINUMAB
     Indication: Dermatitis atopic
     Dosage: 150MG
     Route: 058
     Dates: start: 20211123, end: 20211212

REACTIONS (8)
  - Cartilage injury [Not Recovered/Not Resolved]
  - Arthritis [Not Recovered/Not Resolved]
  - Joint stiffness [Unknown]
  - Condition aggravated [Not Recovered/Not Resolved]
  - Swelling [Unknown]
  - Condition aggravated [Unknown]
  - Arthralgia [Not Recovered/Not Resolved]
  - Inappropriate schedule of product administration [Unknown]

NARRATIVE: CASE EVENT DATE: 20230201
